FAERS Safety Report 8788820 (Version 4)
Quarter: 2013Q1

REPORT INFORMATION
  Report Type: Report from Study
  Country: JP (occurrence: JP)
  Receive Date: 20120917
  Receipt Date: 20130225
  Transmission Date: 20140127
  Serious: Yes (Other)
  Sender: FDA-Public Use
  Company Number: JP-009507513-2012SP027868

PATIENT
  Age: 60 Year
  Sex: Female
  Weight: 59 kg

DRUGS (28)
  1. PEGINTRON [Suspect]
     Indication: CHRONIC HEPATITIS C
     Dosage: 1.5 MICROGRAM PER KILOGRAM, QW
     Route: 058
     Dates: start: 20120316, end: 20120518
  2. PEGINTRON [Suspect]
     Dosage: 0.75 MICROGRAM PER KILOGRAM, QW
     Route: 058
     Dates: start: 20120525, end: 20120615
  3. PEGINTRON [Suspect]
     Dosage: 1.25 MICROGRAM PER KILOGRAM, QW
     Route: 058
     Dates: start: 20120622, end: 20120720
  4. PEGINTRON [Suspect]
     Dosage: 0.75 MICROGRAM PER KILOGRAM, QW
     Route: 058
     Dates: start: 20120727, end: 20120831
  5. REBETOL [Suspect]
     Indication: CHRONIC HEPATITIS C
     Dosage: 600 MG, QD
     Route: 048
     Dates: start: 20120316, end: 20120324
  6. REBETOL [Suspect]
     Dosage: 600 MG, QD
     Route: 048
     Dates: start: 20120326, end: 20120330
  7. REBETOL [Suspect]
     Dosage: 400 MG, QD
     Route: 048
     Dates: start: 20120331, end: 20120420
  8. REBETOL [Suspect]
     Dosage: 600 MG, QD
     Route: 048
     Dates: start: 20120421, end: 20120524
  9. REBETOL [Suspect]
     Dosage: 200 MG, QD
     Route: 048
     Dates: start: 20120525, end: 20120531
  10. REBETOL [Suspect]
     Dosage: 200 MG, QD
     Route: 048
     Dates: start: 20120615, end: 20120621
  11. REBETOL [Suspect]
     Dosage: 400 MG, QD
     Route: 048
     Dates: start: 20120622, end: 20120726
  12. REBETOL [Suspect]
     Dosage: 500 MG, QD
     Route: 048
     Dates: start: 20120727, end: 20120831
  13. TELAVIC [Suspect]
     Indication: CHRONIC HEPATITIS C
     Dosage: 2250 MG, QD
     Route: 048
     Dates: start: 20120316, end: 20120324
  14. TELAVIC [Suspect]
     Dosage: 1500 MG, QD
     Route: 048
     Dates: start: 20120326, end: 20120524
  15. TELAVIC [Suspect]
     Dosage: 750 MG, QD
     Route: 048
     Dates: start: 20120525, end: 20120607
  16. REVOLADE [Concomitant]
     Indication: IDIOPATHIC THROMBOCYTOPENIC PURPURA
     Dosage: 12.5 MG, QD
     Route: 048
     Dates: end: 20120327
  17. REVOLADE [Concomitant]
     Dosage: 12.5 MG, QD
     Route: 048
     Dates: start: 20120427, end: 20120503
  18. THYRADIN-S [Concomitant]
     Indication: BASEDOW^S DISEASE
     Dosage: 100 MICROGRAM, QD
     Route: 048
  19. PARIET [Concomitant]
     Indication: PROPHYLAXIS
     Dosage: 10 MG, QD
     Route: 048
     Dates: start: 20120406, end: 20120830
  20. FAMOTIDINE [Concomitant]
     Indication: DECREASED APPETITE
     Dosage: GASPORT D
     Route: 048
     Dates: start: 20120324
  21. CONFATANIN [Concomitant]
     Indication: NAUSEA
     Dosage: UNK UNK, PRN
     Route: 048
     Dates: start: 20120317
  22. RINDERON VG [Concomitant]
     Indication: ERYTHEMA
     Dosage: UNK UNK, UNKNOWN
     Route: 065
     Dates: start: 20120321
  23. PREDONINE [Concomitant]
     Dosage: 20 MG, QD
     Route: 048
     Dates: start: 20120413, end: 20120420
  24. PREDONINE [Concomitant]
     Dosage: 30 MG, QD
     Route: 048
     Dates: start: 20120405, end: 20120412
  25. PREDONINE [Concomitant]
     Dosage: 15 MG, QD
     Route: 048
     Dates: start: 20120421
  26. DERMOVATE [Concomitant]
     Indication: RASH
     Dosage: DERMOVATE OINTMENT WAS WAS ADMINISTERED 2-3 TIMES A DAY
     Route: 065
     Dates: start: 20120413
  27. ALOSITOL [Concomitant]
     Dosage: UPDATE (02JUL2012)
     Route: 048
     Dates: start: 20120327
  28. URSO [Concomitant]
     Indication: HEPATITIS C
     Dosage: UNK, FORMULATION: POR
     Route: 048
     Dates: start: 20120831

REACTIONS (4)
  - Hyperuricaemia [Recovering/Resolving]
  - Rash [Recovering/Resolving]
  - Haemoglobin decreased [Recovered/Resolved]
  - Hyperuricaemia [Not Recovered/Not Resolved]
